FAERS Safety Report 6781013-1 (Version None)
Quarter: 2010Q2

REPORT INFORMATION
  Report Type: 
  Country: None (occurrence: None)
  Receive Date: 20100621
  Receipt Date: 20100616
  Transmission Date: 20101027
  Serious: Yes (Other)
  Sender: FDA-Public Use
  Company Number: IN-ROXANE LABORATORIES, INC.-2010-DE-03341GD

PATIENT
  Sex: Male

DRUGS (2)
  1. CODEINE SULFATE [Suspect]
     Route: 048
     Dates: start: 19930101, end: 19950101
  2. DEXTROPROPOXYPHENE [Suspect]
     Route: 048
     Dates: start: 19930101, end: 19950101

REACTIONS (1)
  - DRUG ABUSE [None]
